FAERS Safety Report 6465084-8 (Version None)
Quarter: 2009Q4

REPORT INFORMATION
  Report Type: 
  Country: None (occurrence: None)
  Receive Date: 20091119
  Receipt Date: 20090909
  Transmission Date: 20100525
  Serious: No
  Sender: FDA-Public Use
  Company Number: WAES0909USA01174

PATIENT
  Age: 50 Year
  Sex: Female

DRUGS (5)
  1. JANUVIA [Suspect]
     Dosage: DAILY/PO
     Route: 048
     Dates: start: 20090826
  2. LIPITOR [Concomitant]
  3. NEURONTIN [Concomitant]
  4. LISINOPRIL [Concomitant]
  5. NAPROXEN [Concomitant]

REACTIONS (3)
  - BREAST MASS [None]
  - EYE SWELLING [None]
  - WRONG TECHNIQUE IN DRUG USAGE PROCESS [None]
